FAERS Safety Report 13615536 (Version 2)
Quarter: 2017Q2

REPORT INFORMATION
  Report Type: Spontaneous
  Country: US (occurrence: US)
  Receive Date: 20170606
  Receipt Date: 20170608
  Transmission Date: 20170830
  Serious: Yes (Hospitalization)
  Sender: FDA-Public Use
  Company Number: US-PFIZER INC-2017243188

PATIENT
  Age: 30 Month
  Sex: Male

DRUGS (6)
  1. ZONALON [Suspect]
     Active Substance: DOXEPIN HYDROCHLORIDE
     Dosage: A TOTAL OF HALF OF A 30 G TUBE WAS USED OVER MOST OF BODY, THREE TIMES A DAY
     Route: 061
     Dates: start: 19950507, end: 19950508
  2. EUCERIN [Concomitant]
     Active Substance: ENSULIZOLE\EUCERIN\OCTINOXATE\OCTISALATE\TITANIUM DIOXIDE\ZINC OXIDE
     Dosage: UNK
  3. ZONALON [Suspect]
     Active Substance: DOXEPIN HYDROCHLORIDE
     Indication: ECZEMA
     Dosage: TWO SAMPLE TUBES OF 6 G EACH WERE USED ON ARMS AND LEGS, THREE TIMES A DAY
     Route: 061
     Dates: start: 19950505, end: 19950506
  4. CEFUROXIME. [Concomitant]
     Active Substance: CEFUROXIME
     Dosage: UNK
  5. HYDROXYZINE [Concomitant]
     Active Substance: HYDROXYZINE HYDROCHLORIDE
     Dosage: UNK
  6. ALUMINUM ACETATE [Concomitant]
     Active Substance: ALUMINUM ACETATE
     Dosage: UNK

REACTIONS (4)
  - Coma [Recovered/Resolved]
  - Respiratory distress [Recovered/Resolved]
  - Depressed level of consciousness [Recovered/Resolved]
  - Generalised tonic-clonic seizure [Recovered/Resolved]

NARRATIVE: CASE EVENT DATE: 19950508
